FAERS Safety Report 7481442-7 (Version None)
Quarter: 2011Q2

REPORT INFORMATION
  Report Type: 
  Country: None (occurrence: None)
  Receive Date: 20110516
  Receipt Date: 20110505
  Transmission Date: 20111010
  Serious: Yes (Hospitalization, Other)
  Sender: FDA-Public Use
  Company Number: US-CEPHALON-2010002621

PATIENT
  Sex: Female
  Weight: 45 kg

DRUGS (16)
  1. VITAMIN TAB [Concomitant]
     Indication: VITAMIN SUPPLEMENTATION
  2. 5HTP [Concomitant]
     Indication: FIBROMYALGIA
  3. FENTORA [Suspect]
     Indication: BACK PAIN
     Route: 002
     Dates: start: 20100426
  4. PAXIL [Concomitant]
     Indication: ANXIETY
     Dates: start: 20020101
  5. MELATONIN [Concomitant]
     Indication: INSOMNIA
     Dates: start: 20040101
  6. FENTORA [Suspect]
     Route: 002
     Dates: end: 20101113
  7. PREMARIN [Concomitant]
     Indication: HORMONE REPLACEMENT THERAPY
     Dates: start: 19970101
  8. FENTORA [Suspect]
     Indication: FIBROMYALGIA
     Route: 002
     Dates: end: 20090701
  9. PERCOCET [Concomitant]
     Indication: FIBROMYALGIA
     Dates: start: 20010101
  10. ACTONEL [Concomitant]
     Indication: OSTEOPOROSIS
     Dates: start: 20100101
  11. ACTONEL [Concomitant]
     Indication: FIBROMYALGIA
  12. FENTORA [Suspect]
     Route: 002
     Dates: end: 20101113
  13. DILTIAZEM [Concomitant]
     Indication: BLOOD PRESSURE
  14. FIORICET [Concomitant]
     Indication: HEADACHE
     Dates: start: 19930101
  15. 5HTP [Concomitant]
     Indication: INSOMNIA
     Dates: start: 20070101
  16. PHENOBARBITAL TAB [Concomitant]
     Indication: CONVULSION
     Dates: start: 20010101

REACTIONS (14)
  - DRUG PRESCRIBING ERROR [None]
  - COGNITIVE DISORDER [None]
  - PANIC ATTACK [None]
  - THINKING ABNORMAL [None]
  - DRUG INEFFECTIVE FOR UNAPPROVED INDICATION [None]
  - SOMNOLENCE [None]
  - DYSPNOEA [None]
  - WITHDRAWAL SYNDROME [None]
  - HEAD DISCOMFORT [None]
  - INTENTIONAL DRUG MISUSE [None]
  - DIZZINESS [None]
  - DRUG DEPENDENCE [None]
  - NAUSEA [None]
  - COUGH [None]
